FAERS Safety Report 12758517 (Version 1)
Quarter: 2016Q3

REPORT INFORMATION
  Report Type: Spontaneous
  Country: US (occurrence: US)
  Receive Date: 20160917
  Receipt Date: 20160917
  Transmission Date: 20161109
  Serious: No
  Sender: FDA-Public Use
  Company Number: None

PATIENT
  Age: 47 Year
  Sex: Male
  Weight: 76.5 kg

DRUGS (2)
  1. ADDERALL [Concomitant]
     Active Substance: AMPHETAMINE ASPARTATE\AMPHETAMINE SULFATE\DEXTROAMPHETAMINE SACCHARATE\DEXTROAMPHETAMINE SULFATE
  2. AMPHETAMINE SALTS ER 30 MG ACTAVIS PHARMA [Suspect]
     Active Substance: AMPHETAMINE ASPARTATE\AMPHETAMINE SULFATE\DEXTROAMPHETAMINE SACCHARATE\DEXTROAMPHETAMINE SULFATE
     Indication: ATTENTION DEFICIT/HYPERACTIVITY DISORDER
     Route: 048
     Dates: start: 20080901

REACTIONS (8)
  - Headache [None]
  - Pain [None]
  - Product measured potency issue [None]
  - Confusional state [None]
  - Drug ineffective [None]
  - Economic problem [None]
  - Feeling abnormal [None]
  - Product substitution issue [None]

NARRATIVE: CASE EVENT DATE: 20160909
